FAERS Safety Report 7341193-6 (Version None)
Quarter: 2011Q1

REPORT INFORMATION
  Report Type: 
  Country: None (occurrence: None)
  Receive Date: 20110309
  Receipt Date: 20110301
  Transmission Date: 20110831
  Serious: Yes (Other)
  Sender: FDA-Public Use
  Company Number: B0704857A

PATIENT
  Sex: Male

DRUGS (5)
  1. MICROPIRIN [Concomitant]
  2. RYTHMEX [Suspect]
     Dosage: 150MG TWICE PER DAY
     Route: 048
     Dates: end: 20110218
  3. FUSID [Concomitant]
  4. OPTISAFE AREDS [Concomitant]
  5. ALDACTONE [Concomitant]

REACTIONS (5)
  - ABDOMINAL SYMPTOM [None]
  - SPLENOMEGALY [None]
  - TACHYCARDIA [None]
  - PALPITATIONS [None]
  - CHEST DISCOMFORT [None]
